FAERS Safety Report 6353818-2 (Version None)
Quarter: 2009Q3

REPORT INFORMATION
  Report Type: 
  Country: None (occurrence: None)
  Receive Date: 20090912
  Receipt Date: 20090622
  Transmission Date: 20100115
  Serious: No
  Sender: FDA-Public Use
  Company Number: US-ABBOTT-08P-163-0470181-00

PATIENT
  Sex: Female
  Weight: 59.02 kg

DRUGS (4)
  1. HUMIRA [Suspect]
     Indication: PSORIASIS
     Route: 058
     Dates: start: 20080201, end: 20080201
  2. HUMIRA [Suspect]
     Indication: PSORIATIC ARTHROPATHY
  3. HUMIRA [Suspect]
     Indication: PSORIASIS
     Route: 058
     Dates: start: 20080201
  4. HUMIRA [Suspect]
     Indication: PSORIATIC ARTHROPATHY

REACTIONS (7)
  - INCORRECT DOSE ADMINISTERED [None]
  - INJECTION SITE ERYTHEMA [None]
  - INJECTION SITE PAIN [None]
  - INJECTION SITE PAPULE [None]
  - INJECTION SITE PRURITUS [None]
  - PSORIASIS [None]
  - WRONG TECHNIQUE IN DRUG USAGE PROCESS [None]
